FAERS Safety Report 4749895-2 (Version None)
Quarter: 2005Q3

REPORT INFORMATION
  Report Type: 
  Country: None (occurrence: None)
  Receive Date: 20050822
  Receipt Date: 20050812
  Transmission Date: 20060218
  Serious: Yes (Hospitalization)
  Sender: FDA-Public Use
  Company Number: JP-ABBOTT-05P-087-0308411-00

PATIENT
  Age: 86 Year
  Sex: Male
  Weight: 31.6 kg

DRUGS (2)
  1. KLARICID [Suspect]
     Indication: SINUSITIS
     Route: 048
     Dates: start: 20050606, end: 20050715
  2. HALOPERIDOL [Suspect]
     Indication: VASCULAR DEMENTIA
     Route: 048
     Dates: start: 20050611, end: 20050715

REACTIONS (5)
  - ANAEMIA [None]
  - ANOREXIA [None]
  - DEPRESSED LEVEL OF CONSCIOUSNESS [None]
  - LIVER DISORDER [None]
  - RENAL DISORDER [None]
